FAERS Safety Report 4422395-5 (Version None)
Quarter: 2004Q3

REPORT INFORMATION
  Report Type: 
  Country: None (occurrence: None)
  Receive Date: 20040806
  Receipt Date: 20040723
  Transmission Date: 20050211
  Serious: Yes (Life-Threatening, Hospitalization)
  Sender: FDA-Public Use
  Company Number: VIS10159.2001

PATIENT
  Age: 68 Year
  Sex: Female
  Weight: 81.6475 kg

DRUGS (17)
  1. TRICOR [Suspect]
     Indication: HYPERCHOLESTEROLAEMIA
     Dosage: 160 MG DAILY PO
     Route: 048
  2. DYAZIDE [Suspect]
     Indication: DIURETIC THERAPY
  3. DYAZIDE [Suspect]
     Indication: HYPERTENSION
  4. VISICOL [Suspect]
     Indication: COLONOSCOPY
     Dosage: 30 G ONCE PO
     Route: 048
     Dates: start: 20040718, end: 20040718
  5. CATAPRES [Concomitant]
  6. PLAVIX [Concomitant]
  7. POTASSIUM [Concomitant]
  8. PREMARIN [Concomitant]
  9. PROTONIX [Concomitant]
  10. LASIX [Concomitant]
  11. ALTASE [Concomitant]
  12. TOPROL-XL [Concomitant]
  13. CRESTOR [Concomitant]
  14. REGLAN [Concomitant]
  15. FOLIC ACID [Concomitant]
  16. ASPIRIN [Concomitant]
  17. AZMACORT [Concomitant]

REACTIONS (12)
  - ABDOMINAL PAIN UPPER [None]
  - BLOOD PRESSURE INCREASED [None]
  - DEPRESSED LEVEL OF CONSCIOUSNESS [None]
  - DIABETES MELLITUS [None]
  - HAEMORRHOIDS [None]
  - HYPERTRIGLYCERIDAEMIA [None]
  - HYPOKALAEMIA [None]
  - PANCREATITIS [None]
  - PANCREATITIS ACUTE [None]
  - PSEUDOCYST [None]
  - SHOCK [None]
  - SINUS TACHYCARDIA [None]
